FAERS Safety Report 14833877 (Version 1)
Quarter: 2018Q2

REPORT INFORMATION
  Report Type: Spontaneous
  Country: US (occurrence: US)
  Receive Date: 20180501
  Receipt Date: 20180501
  Transmission Date: 20180711
  Serious: No
  Sender: FDA-Public Use
  Company Number: US-ROCHE-2066660

PATIENT
  Weight: 135.6 kg

DRUGS (1)
  1. AVASTIN [Suspect]
     Active Substance: BEVACIZUMAB
     Indication: PRODUCT USED FOR UNKNOWN INDICATION
     Dosage: 2042 MG/400MG PER VIAL =6 VIAL USED,
     Route: 065

REACTIONS (2)
  - Blood urine present [Unknown]
  - Proteinuria [Unknown]
